FAERS Safety Report 25724853 (Version 1)
Quarter: 2025Q3

REPORT INFORMATION
  Report Type: Spontaneous
  Country: US (occurrence: US)
  Receive Date: 20250826
  Receipt Date: 20250826
  Transmission Date: 20251020
  Serious: No
  Sender: RANBAXY
  Company Number: US-MIMS-SUN-2025-USA-54392

PATIENT
  Sex: Female
  Weight: 92.533 kg

DRUGS (1)
  1. FLUOCINONIDE [Suspect]
     Active Substance: FLUOCINONIDE
     Indication: Lichen planus
     Route: 048

REACTIONS (1)
  - Incorrect route of product administration [Unknown]
